FAERS Safety Report 23521879 (Version 1)
Quarter: 2024Q1

REPORT INFORMATION
  Report Type: Spontaneous
  Country: US (occurrence: None)
  Receive Date: 20240213
  Receipt Date: 20240213
  Transmission Date: 20240410
  Serious: Yes (Hospitalization)
  Sender: FDA-Public Use
  Company Number: None

PATIENT
  Age: 34 Year
  Sex: Male
  Weight: 65.25 kg

DRUGS (9)
  1. AMYL NITRATE [Suspect]
     Active Substance: AMYL NITRATE
     Indication: Dependence
     Dates: end: 20240213
  2. AMYL NITRATE [Suspect]
     Active Substance: AMYL NITRATE
  3. CLOZAPINE [Concomitant]
     Active Substance: CLOZAPINE
  4. ARMODAFINIL [Concomitant]
     Active Substance: ARMODAFINIL
  5. GABAPENTIN [Concomitant]
     Active Substance: GABAPENTIN
  6. MINOCYCLINE [Concomitant]
     Active Substance: MINOCYCLINE HYDROCHLORIDE
  7. CANNABIS SATIVA SUBSP. INDICA TOP [Concomitant]
     Active Substance: CANNABIS SATIVA SUBSP. INDICA TOP
  8. FISH OIL [Concomitant]
     Active Substance: FISH OIL
  9. VITAMINS [Concomitant]
     Active Substance: VITAMINS

REACTIONS (1)
  - Hospitalisation [None]

NARRATIVE: CASE EVENT DATE: 20220210
